FAERS Safety Report 17577507 (Version 1)
Quarter: 2020Q1

REPORT INFORMATION
  Report Type: Report from Study
  Country: US (occurrence: US)
  Receive Date: 20200324
  Receipt Date: 20200324
  Transmission Date: 20200409
  Serious: Yes (Death, Other)
  Sender: FDA-Public Use
  Company Number: US-GILEAD-2020-0456240

PATIENT
  Age: 69 Year
  Sex: Male

DRUGS (6)
  1. AZTREONAM LYSINE [Suspect]
     Active Substance: AZTREONAM LYSINE
     Indication: INFECTIVE EXACERBATION OF BRONCHIECTASIS
  2. AZTREONAM LYSINE [Suspect]
     Active Substance: AZTREONAM LYSINE
     Indication: LUNG TRANSPLANT
     Dosage: 75 MG, TID
     Route: 055
  3. AZTREONAM LYSINE [Suspect]
     Active Substance: AZTREONAM LYSINE
     Indication: RESPIRATORY DISORDER
  4. AZTREONAM LYSINE [Suspect]
     Active Substance: AZTREONAM LYSINE
     Indication: VIRAL INFECTION
  5. AZTREONAM LYSINE [Suspect]
     Active Substance: AZTREONAM LYSINE
     Indication: RESPIRATORY SYNCYTIAL VIRUS BRONCHIOLITIS
  6. AZTREONAM LYSINE [Suspect]
     Active Substance: AZTREONAM LYSINE
     Indication: IDIOPATHIC PULMONARY FIBROSIS

REACTIONS (2)
  - Death [Fatal]
  - Off label use [Recovered/Resolved]

NARRATIVE: CASE EVENT DATE: 20200310
